FAERS Safety Report 24956484 (Version 1)
Quarter: 2025Q1

REPORT INFORMATION
  Report Type: Spontaneous
  Country: DE (occurrence: DE)
  Receive Date: 20250211
  Receipt Date: 20250211
  Transmission Date: 20250408
  Serious: Yes (Hospitalization, Other)
  Sender: SANDOZ
  Company Number: DE-ASTRAZENECA-202411GLO008350DE

PATIENT
  Age: 56 Year
  Sex: Female
  Weight: 68.5 kg

DRUGS (20)
  1. CARBOPLATIN [Suspect]
     Active Substance: CARBOPLATIN
     Indication: Non-small cell lung cancer metastatic
     Route: 042
  2. CARBOPLATIN [Suspect]
     Active Substance: CARBOPLATIN
     Route: 042
  3. DURVALUMAB [Suspect]
     Active Substance: DURVALUMAB
     Indication: Non-small cell lung cancer metastatic
     Dosage: UNK, Q3W
     Route: 042
     Dates: start: 20240904, end: 20241101
  4. DURVALUMAB [Suspect]
     Active Substance: DURVALUMAB
     Dosage: UNK, Q3W
     Route: 042
     Dates: start: 20240904
  5. DURVALUMAB [Suspect]
     Active Substance: DURVALUMAB
     Dosage: UNK, Q3W
     Route: 042
     Dates: start: 20240904
  6. DURVALUMAB [Suspect]
     Active Substance: DURVALUMAB
     Dosage: UNK, Q3W
     Route: 042
     Dates: start: 20240904
  7. PEMETREXED [Suspect]
     Active Substance: PEMETREXED
     Indication: Non-small cell lung cancer metastatic
     Route: 042
  8. PEMETREXED [Suspect]
     Active Substance: PEMETREXED
     Route: 042
  9. TREMELIMUMAB [Suspect]
     Active Substance: TREMELIMUMAB
     Indication: Non-small cell lung cancer metastatic
     Dosage: UNK, Q3W
     Route: 042
     Dates: start: 20240904, end: 20241101
  10. TREMELIMUMAB [Suspect]
     Active Substance: TREMELIMUMAB
     Dosage: UNK, Q3W
     Route: 042
     Dates: start: 20240904
  11. TREMELIMUMAB [Suspect]
     Active Substance: TREMELIMUMAB
     Dosage: UNK, Q3W
     Route: 042
     Dates: start: 20240904
  12. TREMELIMUMAB [Suspect]
     Active Substance: TREMELIMUMAB
     Dosage: UNK, Q3W
     Route: 042
     Dates: start: 20240904
  13. ATORVASTATIN [Concomitant]
     Active Substance: ATORVASTATIN
     Indication: Prophylaxis
     Dosage: 20 MG, QD
     Route: 048
  14. ELIQUIS [Concomitant]
     Active Substance: APIXABAN
     Indication: Prophylaxis
     Dosage: 10 MG, QD (5 MILLIGRAM, BID)
     Route: 048
  15. INFLIXIMAB [Concomitant]
     Active Substance: INFLIXIMAB
     Indication: Adverse event
     Dosage: 300 MG, Q2W
     Route: 042
     Dates: start: 20241101
  16. Kalinor [Concomitant]
     Indication: Prophylaxis
     Dosage: UNK, 13D (UNK, TID)
     Route: 048
     Dates: start: 20241101, end: 20241113
  17. CALCIUM\CHOLECALCIFEROL\MAGNESIUM\ZINC [Concomitant]
     Active Substance: CALCIUM\CHOLECALCIFEROL\MAGNESIUM\ZINC
     Indication: Prophylaxis
     Route: 048
     Dates: start: 20241101
  18. PANTOZOL [Concomitant]
     Active Substance: PANTOPRAZOLE SODIUM
     Indication: Adverse event
     Dosage: 40 MG, QD
     Route: 048
  19. PREDNISOLONE [Concomitant]
     Active Substance: PREDNISOLONE
     Indication: Prophylaxis
     Dosage: 60 MG, QD
     Route: 048
     Dates: start: 20241101, end: 20241113
  20. VITAMIN D [Concomitant]
     Active Substance: VITAMIN D NOS
     Indication: Product used for unknown indication
     Route: 048
     Dates: start: 20241101

REACTIONS (2)
  - Diarrhoea [Recovered/Resolved]
  - Immune-mediated enterocolitis [Recovered/Resolved]

NARRATIVE: CASE EVENT DATE: 20241004
